FAERS Safety Report 6750416-3 (Version None)
Quarter: 2010Q2

REPORT INFORMATION
  Report Type: 
  Country: None (occurrence: None)
  Receive Date: 20100601
  Receipt Date: 20100519
  Transmission Date: 20101027
  Serious: Yes (Death, Hospitalization, Other)
  Sender: FDA-Public Use
  Company Number: CA-ELI_LILLY_AND_COMPANY-CA201005005289

PATIENT
  Age: 89 Year
  Sex: Male

DRUGS (1)
  1. ZYPREXA [Suspect]
     Indication: AGGRESSION
     Dosage: 10 MG, DAILY (1/D)
     Route: 048

REACTIONS (11)
  - APHASIA [None]
  - CEREBROVASCULAR ACCIDENT [None]
  - CONSTIPATION [None]
  - DEHYDRATION [None]
  - DEPRESSED LEVEL OF CONSCIOUSNESS [None]
  - EYE DISORDER [None]
  - FEELING ABNORMAL [None]
  - INFECTION [None]
  - OFF LABEL USE [None]
  - POSTURE ABNORMAL [None]
  - RHINORRHOEA [None]
